FAERS Safety Report 7904303-5 (Version None)
Quarter: 2011Q4

REPORT INFORMATION
  Report Type: 
  Country: None (occurrence: None)
  Receive Date: 20111109
  Receipt Date: 20111031
  Transmission Date: 20120403
  Serious: Yes (Hospitalization)
  Sender: FDA-Public Use
  Company Number: BR-ASTRAZENECA-2010SE02810

PATIENT
  Age: 60 Year
  Sex: Male
  Weight: 36.3 kg

DRUGS (6)
  1. METOPROLOL SUCCINATE [Suspect]
     Route: 048
     Dates: start: 20110301, end: 20110901
  2. LORAZEPAM [Concomitant]
     Indication: INSOMNIA
     Dosage: OD
     Route: 048
     Dates: start: 20090101, end: 20090101
  3. ATENOLOL [Suspect]
     Indication: HYPERTENSION
     Route: 048
     Dates: start: 20110901, end: 20110901
  4. DIOVAN [Concomitant]
     Indication: HYPERTENSION
     Dosage: OD
     Route: 048
     Dates: start: 20091101
  5. METOPROLOL SUCCINATE [Suspect]
     Route: 048
  6. METOPROLOL SUCCINATE [Suspect]
     Indication: HYPERTENSION
     Route: 048
     Dates: start: 20091101, end: 20110301

REACTIONS (8)
  - NERVOUSNESS [None]
  - CONFUSIONAL STATE [None]
  - BLOOD PRESSURE INCREASED [None]
  - DYSURIA [None]
  - RESTLESSNESS [None]
  - PAIN [None]
  - DRUG INEFFECTIVE [None]
  - NAUSEA [None]
